FAERS Safety Report 4800635-8 (Version None)
Quarter: 2005Q4

REPORT INFORMATION
  Report Type: 
  Country: None (occurrence: None)
  Receive Date: 20051013
  Receipt Date: 20051013
  Transmission Date: 20060501
  Serious: Yes (Other)
  Sender: FDA-Public Use
  Company Number: None

PATIENT
  Age: 58 Year
  Sex: Male
  Weight: 81.27 kg

DRUGS (9)
  1. DOCETAXEL [Suspect]
     Indication: PROSTATE CANCER
     Dosage: 36MG/M2, D1,8,15,IV
     Route: 042
     Dates: start: 20050425, end: 20050804
  2. LOPID [Suspect]
     Indication: HYPERLIPIDAEMIA
     Dosage: 600 MG, DAILY, PO
     Route: 048
     Dates: end: 20050801
  3. VICODIN [Concomitant]
  4. COMPAZINE [Concomitant]
  5. ZESTORETIC [Concomitant]
  6. LOPID [Concomitant]
  7. GLUCOVANCE [Concomitant]
  8. AVANDIA [Concomitant]
  9. VIAGRA [Concomitant]

REACTIONS (2)
  - MYOPATHY [None]
  - PAIN IN EXTREMITY [None]
